FAERS Safety Report 4312987-6 (Version None)
Quarter: 2004Q1

REPORT INFORMATION
  Report Type: 
  Country: None (occurrence: None)
  Receive Date: 20040305
  Receipt Date: 20040305
  Transmission Date: 20041129
  Serious: Yes (Death, Hospitalization)
  Sender: FDA-Public Use
  Company Number: None

PATIENT
  Age: 77 Year
  Sex: Male

DRUGS (2)
  1. TAXOTERE [Suspect]
     Indication: NON-SMALL CELL LUNG CANCER
     Dosage: 200 MG/M2 WEEKLY IV
     Route: 042
     Dates: start: 20031124, end: 20050105
  2. CARBOPLATIN [Suspect]
     Indication: NON-SMALL CELL LUNG CANCER
     Dosage: AUC 2 WEEKLY IV
     Route: 042
     Dates: start: 20031124, end: 20040105

REACTIONS (4)
  - ASTHENIA [None]
  - COUGH [None]
  - RADIATION PNEUMONITIS [None]
  - RESPIRATORY FAILURE [None]
